FAERS Safety Report 8543882-4 (Version None)
Quarter: 2012Q3

REPORT INFORMATION
  Report Type: 
  Country: None (occurrence: None)
  Receive Date: 20120727
  Receipt Date: 20120720
  Transmission Date: 20120928
  Serious: Yes (Hospitalization)
  Sender: FDA-Public Use
  Company Number: PHEH2012US014390

PATIENT
  Age: 35 Year
  Sex: Female

DRUGS (1)
  1. GILENYA [Suspect]
     Indication: MULTIPLE SCLEROSIS
     Dosage: 0.5 MG, QD
     Route: 048
     Dates: start: 20120515

REACTIONS (5)
  - HEADACHE [None]
  - NAUSEA [None]
  - HYDROCEPHALUS [None]
  - VOMITING [None]
  - INTRACRANIAL PRESSURE INCREASED [None]
